FAERS Safety Report 9335893 (Version 1)
Quarter: 2013Q2

REPORT INFORMATION
  Report Type: Spontaneous
  Country: US (occurrence: US)
  Receive Date: 20130606
  Receipt Date: 20130606
  Transmission Date: 20140414
  Serious: No
  Sender: FDA-Public Use
  Company Number: US-AMGEN-USASP2013017641

PATIENT
  Age: 61 Year
  Sex: Female
  Weight: 48.07 kg

DRUGS (3)
  1. PROLIA [Suspect]
     Indication: OSTEOPOROSIS
     Dosage: 60 MG, ONE TIME DOSE
     Route: 058
     Dates: start: 20130220
  2. HYDROCHLOROTHIAZID [Concomitant]
     Dosage: 12.5 DF, QD
     Route: 048
  3. ALLEGRA [Concomitant]
     Dosage: 60 DF, QD
     Route: 048

REACTIONS (4)
  - Neck pain [Unknown]
  - Injection site pain [Unknown]
  - Bone pain [Recovered/Resolved]
  - Pain in extremity [Unknown]
